FAERS Safety Report 16302841 (Version 2)
Quarter: 2020Q2

REPORT INFORMATION
  Report Type: Spontaneous
  Country: IT (occurrence: IT)
  Receive Date: 20190513
  Receipt Date: 20200605
  Transmission Date: 20200713
  Serious: Yes (Other)
  Sender: FDA-Public Use
  Company Number: IT-SUN PHARMACEUTICAL INDUSTRIES LTD-2019RR-207561

PATIENT
  Age: 56 Year
  Sex: Male
  Weight: 68 kg

DRUGS (2)
  1. CAPECITABINE. [Suspect]
     Active Substance: CAPECITABINE
     Indication: INTESTINAL ADENOCARCINOMA
     Dosage: 1750 MILLIGRAM, CYCLICAL
     Route: 048
     Dates: start: 20190117, end: 20190214
  2. OXALIPLATIN. [Suspect]
     Active Substance: OXALIPLATIN
     Indication: INTESTINAL ADENOCARCINOMA
     Dosage: 232 MILLIGRAM, CYCLICAL
     Route: 042
     Dates: start: 20190117, end: 20190214

REACTIONS (1)
  - Hyperbilirubinaemia [Recovering/Resolving]

NARRATIVE: CASE EVENT DATE: 20190129
